FAERS Safety Report 12501784 (Version 1)
Quarter: 2016Q2

REPORT INFORMATION
  Report Type: Spontaneous
  Country: US (occurrence: US)
  Receive Date: 20160627
  Receipt Date: 20160627
  Transmission Date: 20160815
  Serious: No
  Sender: FDA-Public Use
  Company Number: US-DSJP-DSU-2015-123574

PATIENT
  Age: 67 Year
  Sex: Female
  Weight: 92.97 kg

DRUGS (1)
  1. WELCHOL [Suspect]
     Active Substance: COLESEVELAM HYDROCHLORIDE
     Indication: DIABETES MELLITUS
     Dosage: 1875 MG, BID
     Route: 048
     Dates: start: 2013

REACTIONS (3)
  - Weight increased [Unknown]
  - Laryngitis [Unknown]
  - Weight decreased [Unknown]

NARRATIVE: CASE EVENT DATE: 201507
